FAERS Safety Report 9429443 (Version 1)
Quarter: 2013Q3

REPORT INFORMATION
  Report Type: Report from Study
  Country: US (occurrence: US)
  Receive Date: 20130730
  Receipt Date: 20130730
  Transmission Date: 20140515
  Serious: No
  Sender: FDA-Public Use
  Company Number: US-ABBOTT-13P-163-1056470-00

PATIENT
  Sex: Female

DRUGS (4)
  1. NIASPAN (COATED) [Suspect]
     Indication: LOW DENSITY LIPOPROTEIN ABNORMAL
     Dosage: 2 PILLS IN THE MORNING
     Dates: start: 2010
  2. NIASPAN (COATED) [Suspect]
     Dosage: 2 PILLS IN THE EVENING
  3. ASPIRIN [Concomitant]
     Indication: FLUSHING
     Dosage: LOW DOSE, WITH NIASPAN
  4. NEXIUM [Concomitant]
     Indication: PRODUCT USED FOR UNKNOWN INDICATION

REACTIONS (8)
  - Depression [Not Recovered/Not Resolved]
  - Fluid retention [Not Recovered/Not Resolved]
  - Flushing [Recovered/Resolved]
  - Rash erythematous [Recovered/Resolved]
  - Pruritus [Recovered/Resolved]
  - Paraesthesia [Recovered/Resolved]
  - Paraesthesia [Recovered/Resolved]
  - Pruritus [Recovered/Resolved]
